FAERS Safety Report 5640881-7 (Version None)
Quarter: 2008Q1

REPORT INFORMATION
  Report Type: 
  Country: None (occurrence: None)
  Receive Date: 20080227
  Receipt Date: 20080225
  Transmission Date: 20080703
  Serious: Yes (Hospitalization, Other)
  Sender: FDA-Public Use
  Company Number: B0469527A

PATIENT
  Age: 46 Year
  Sex: Male

DRUGS (6)
  1. ZEFIX [Suspect]
     Indication: HEPATIC CIRRHOSIS
     Dosage: 100MG PER DAY
     Route: 048
     Dates: start: 20050902
  2. HEPSERA [Suspect]
     Indication: HEPATIC CIRRHOSIS
     Dosage: 10MG PER DAY
     Route: 048
     Dates: start: 20061108
  3. ALDACTONE [Concomitant]
     Route: 048
  4. PARIET [Concomitant]
     Route: 048
  5. PROMAC [Concomitant]
     Route: 048
  6. MERCAZOLE [Concomitant]
     Route: 048

REACTIONS (4)
  - HEPATIC NEOPLASM MALIGNANT [None]
  - HEPATITIS [None]
  - PATHOGEN RESISTANCE [None]
  - THYROID FUNCTION TEST ABNORMAL [None]
